FAERS Safety Report 8829803 (Version 1)
Quarter: 2012Q4

REPORT INFORMATION
  Report Type: Spontaneous
  Country: US (occurrence: None)
  Receive Date: 20121005
  Receipt Date: 20121005
  Transmission Date: 20130627
  Serious: Yes (Other)
  Sender: FDA-Public Use
  Company Number: None

PATIENT
  Age: 75 Year
  Sex: Male
  Weight: 65.77 kg

DRUGS (1)
  1. TAMSULOSIN [Suspect]
     Indication: PROSTATIC DISORDER
     Dosage: one pill Daily po
     Route: 048
     Dates: start: 20040105, end: 20120908

REACTIONS (6)
  - Agitation [None]
  - Restlessness [None]
  - Insomnia [None]
  - Anxiety [None]
  - Product substitution issue [None]
  - Product quality issue [None]
